FAERS Safety Report 16516603 (Version 1)
Quarter: 2019Q3

REPORT INFORMATION
  Report Type: Spontaneous
  Country: US (occurrence: US)
  Receive Date: 20190702
  Receipt Date: 20190702
  Transmission Date: 20191004
  Serious: Yes (Other)
  Sender: FDA-Public Use
  Company Number: None

PATIENT
  Age: 19 Year
  Sex: Female

DRUGS (1)
  1. IMPLANON [Suspect]
     Active Substance: ETONOGESTREL
     Indication: SUPPRESSED LACTATION
     Route: 023
     Dates: start: 19960829

REACTIONS (3)
  - Maternal exposure during breast feeding [None]
  - Suppressed lactation [None]
  - Product use issue [None]

NARRATIVE: CASE EVENT DATE: 20160829
